FAERS Safety Report 6844313-2 (Version None)
Quarter: 2010Q3

REPORT INFORMATION
  Report Type: 
  Country: None (occurrence: None)
  Receive Date: 20100715
  Receipt Date: 20100707
  Transmission Date: 20110219
  Serious: Yes (Hospitalization)
  Sender: FDA-Public Use
  Company Number: DE-ROCHE-714840

PATIENT
  Age: 62 Year
  Sex: Female

DRUGS (4)
  1. TOCILIZUMAB [Suspect]
     Indication: RHEUMATOID ARTHRITIS
     Route: 042
     Dates: start: 20090501
  2. TOCILIZUMAB [Suspect]
     Route: 042
     Dates: start: 20090724
  3. MTX [Suspect]
     Indication: RHEUMATOID ARTHRITIS
     Route: 058
     Dates: start: 19970101, end: 20090501
  4. INFLIXIMAB [Suspect]
     Indication: RHEUMATOID ARTHRITIS
     Dosage: 12 APPLICATIONS GIVEN
     Route: 065
     Dates: start: 20071101, end: 20090301

REACTIONS (2)
  - ATAXIA [None]
  - SUBACUTE COMBINED CORD DEGENERATION [None]
